FAERS Safety Report 7832229-4 (Version None)
Quarter: 2011Q4

REPORT INFORMATION
  Report Type: 
  Country: None (occurrence: None)
  Receive Date: 20111022
  Receipt Date: 20100517
  Transmission Date: 20120403
  Serious: No
  Sender: FDA-Public Use
  Company Number: US-BAYER-201023040NA

PATIENT
  Age: 68 Year
  Sex: Male

DRUGS (1)
  1. CIPROFLOXACIN [Suspect]
     Indication: CELLULITIS

REACTIONS (3)
  - CONFUSIONAL STATE [None]
  - MUSCULAR WEAKNESS [None]
  - ABNORMAL BEHAVIOUR [None]
